FAERS Safety Report 14505801 (Version 1)
Quarter: 2018Q1

REPORT INFORMATION
  Report Type: Spontaneous
  Country: FR (occurrence: FR)
  Receive Date: 20180208
  Receipt Date: 20180208
  Transmission Date: 20180509
  Serious: Yes (Other)
  Sender: FDA-Public Use
  Company Number: FR-PFIZER INC-2018049409

PATIENT
  Sex: Male

DRUGS (1)
  1. CAVERJECT [Suspect]
     Active Substance: ALPROSTADIL
     Indication: ERECTILE DYSFUNCTION
     Dosage: UNK UNK, SINGLE

REACTIONS (3)
  - Micturition urgency [Recovering/Resolving]
  - Peyronie^s disease [Unknown]
  - Penile ulceration [Unknown]
